FAERS Safety Report 9182601 (Version 1)
Quarter: 2012Q4

REPORT INFORMATION
  Report Type: Report from Study
  Country: CA (occurrence: CA)
  Receive Date: 20121030
  Receipt Date: 20121030
  Transmission Date: 20130627
  Serious: Yes (Hospitalization)
  Sender: FDA-Public Use
  Company Number: CA-JNJFOC-20121011877

PATIENT
  Age: 45 None
  Sex: Male
  Weight: 74 kg

DRUGS (3)
  1. REMICADE [Suspect]
     Indication: CROHN^S DISEASE
     Route: 042
     Dates: start: 20120722, end: 20120912
  2. IMURAN [Concomitant]
     Route: 048
  3. PREDNISONE [Concomitant]
     Route: 048

REACTIONS (3)
  - Abscess [Unknown]
  - Fistula [Unknown]
  - Abdominal distension [Unknown]
